FAERS Safety Report 10040650 (Version 2)
Quarter: 2014Q2

REPORT INFORMATION
  Report Type: Spontaneous
  Country: US (occurrence: US)
  Receive Date: 20140327
  Receipt Date: 20140627
  Transmission Date: 20141212
  Serious: No
  Sender: FDA-Public Use
  Company Number: US-GLAXOSMITHKLINE-A1062089A

PATIENT
  Age: 55 Year
  Sex: Male

DRUGS (2)
  1. TAFINLAR [Suspect]
     Indication: METASTATIC MALIGNANT MELANOMA
     Dosage: 150MG TWICE PER DAY
     Route: 048
     Dates: start: 20140109, end: 20140220
  2. UNKNOWN [Concomitant]

REACTIONS (1)
  - Rash [Recovered/Resolved]
